FAERS Safety Report 6923987-1 (Version None)
Quarter: 2010Q3

REPORT INFORMATION
  Report Type: 
  Country: None (occurrence: None)
  Receive Date: 20100813
  Receipt Date: 20100804
  Transmission Date: 20110219
  Serious: Yes (Death, Other)
  Sender: FDA-Public Use
  Company Number: US-ELI_LILLY_AND_COMPANY-US201008002020

PATIENT
  Age: 62 Year
  Sex: Female

DRUGS (3)
  1. ZYPREXA [Suspect]
     Indication: BIPOLAR DISORDER
  2. GEODON [Concomitant]
  3. XANAX [Concomitant]

REACTIONS (3)
  - FALL [None]
  - RIB FRACTURE [None]
  - TRAUMATIC LUNG INJURY [None]
